FAERS Safety Report 17566567 (Version 2)
Quarter: 2020Q1

REPORT INFORMATION
  Report Type: Spontaneous
  Country: TW (occurrence: TW)
  Receive Date: 20200320
  Receipt Date: 20200323
  Transmission Date: 20200409
  Serious: No
  Sender: FDA-Public Use
  Company Number: TW-PFIZER INC-2020113637

PATIENT
  Age: 69 Year
  Sex: Male

DRUGS (2)
  1. FLUCONAZOLE. [Suspect]
     Active Substance: FLUCONAZOLE
     Indication: PROTOTHECOSIS
     Dosage: 200 MG, DAILY (IN FOUR DIVIDED DOSES PER DAY)
     Route: 048
  2. AMPHOTERICIN B. [Concomitant]
     Active Substance: AMPHOTERICIN B
     Indication: PROTOTHECOSIS
     Dosage: 0.1 UG/ML, 2X/DAY (WET DRESSING WITH AMPHOTERICIN B SOLUTION)

REACTIONS (3)
  - Off label use [Unknown]
  - Product use in unapproved indication [Unknown]
  - Drug effective for unapproved indication [Unknown]
